FAERS Safety Report 16757573 (Version 1)
Quarter: 2019Q3

REPORT INFORMATION
  Report Type: Report from Study
  Country: RU (occurrence: RU)
  Receive Date: 20190830
  Receipt Date: 20190830
  Transmission Date: 20191005
  Serious: Yes (Hospitalization)
  Sender: FDA-Public Use
  Company Number: RU-ASTRAZENECA-2019SF22009

PATIENT
  Age: 64 Year
  Sex: Male
  Weight: 79 kg

DRUGS (3)
  1. METOPROLOL. [Concomitant]
     Active Substance: METOPROLOL
  2. ROSUVASTATIN. [Concomitant]
     Active Substance: ROSUVASTATIN
  3. BRILINTA [Suspect]
     Active Substance: TICAGRELOR
     Indication: MYOCARDIAL INFARCTION
     Route: 048
     Dates: start: 201902, end: 20190729

REACTIONS (1)
  - Cough [Not Recovered/Not Resolved]
